FAERS Safety Report 9011303 (Version 1)
Quarter: 2013Q1

REPORT INFORMATION
  Report Type: Spontaneous
  Country: US (occurrence: US)
  Receive Date: 20130109
  Receipt Date: 20130109
  Transmission Date: 20140127
  Serious: Yes (Death)
  Sender: FDA-Public Use
  Company Number: US-PFIZER INC-2013006267

PATIENT
  Age: 54 Year
  Sex: Female

DRUGS (13)
  1. GABAPENTIN [Suspect]
     Dosage: UNK
     Route: 048
  2. MONTELUKAST [Suspect]
  3. HYDROXYZINE PAMOATE [Suspect]
  4. AMITRIPTYLINE [Suspect]
  5. TRAZODONE [Suspect]
  6. LISINOPRIL [Suspect]
  7. LIPOZENE [Suspect]
  8. CETIRIZINE [Suspect]
  9. DOCUSATE [Suspect]
  10. ACETAMINOPHEN/DIPHENHYDRAMINE [Suspect]
  11. PREDNISONE [Suspect]
  12. MAGNESIUM SALICYLATE [Suspect]
  13. PAMABROM [Suspect]

REACTIONS (1)
  - Death [Fatal]
